FAERS Safety Report 9103776 (Version 1)
Quarter: 2013Q1

REPORT INFORMATION
  Report Type: Spontaneous
  Country: US (occurrence: US)
  Receive Date: 20130219
  Receipt Date: 20130219
  Transmission Date: 20140127
  Serious: Yes (Death, Hospitalization, Other)
  Sender: FDA-Public Use
  Company Number: US-JNJFOC-20130110684

PATIENT
  Age: 64 Year
  Sex: Female

DRUGS (7)
  1. DOXORUBICIN HYDROCHLORIDE [Suspect]
     Indication: OVARIAN CANCER
     Route: 042
  2. DOXORUBICIN HYDROCHLORIDE [Suspect]
     Indication: OVARIAN CANCER
     Dosage: TOTAL CUMULATIVE DOSE WAS 905 MG/M2
     Route: 042
     Dates: start: 200809, end: 200911
  3. BEVACIZUMAB [Suspect]
     Indication: OVARIAN CANCER
     Route: 065
  4. BEVACIZUMAB [Suspect]
     Indication: OVARIAN CANCER
     Route: 065
     Dates: start: 200809, end: 200911
  5. GEMCITABINE [Suspect]
     Indication: OVARIAN CANCER
     Route: 065
  6. PACLITAXEL [Suspect]
     Indication: OVARIAN CANCER
     Route: 065
  7. CARBOPLATIN [Suspect]
     Indication: OVARIAN CANCER
     Route: 065

REACTIONS (7)
  - Ovarian cancer [Fatal]
  - Renal failure chronic [Fatal]
  - Endocarditis noninfective [Unknown]
  - Thrombotic microangiopathy [Recovered/Resolved]
  - Convulsion [Unknown]
  - Encephalopathy [Unknown]
  - Peripheral ischaemia [Unknown]
